FAERS Safety Report 11870242 (Version 1)
Quarter: 2015Q4

REPORT INFORMATION
  Report Type: Spontaneous
  Country: US (occurrence: US)
  Receive Date: 20151228
  Receipt Date: 20151228
  Transmission Date: 20160305
  Serious: Yes (Other)
  Sender: FDA-Public Use
  Company Number: US-SA-2015SA164370

PATIENT
  Age: 78 Year
  Sex: Female
  Weight: 63.9 kg

DRUGS (19)
  1. JUXTAPID [Suspect]
     Active Substance: LOMITAPIDE MESYLATE
     Indication: TYPE IIA HYPERLIPIDAEMIA
     Route: 048
  2. JUXTAPID [Suspect]
     Active Substance: LOMITAPIDE MESYLATE
     Indication: TYPE IIA HYPERLIPIDAEMIA
     Route: 048
     Dates: start: 20131025
  3. ROZEREM [Concomitant]
     Active Substance: RAMELTEON
  4. PEPCID [Concomitant]
     Active Substance: FAMOTIDINE
  5. MAGNESIUM CARBONATE [Concomitant]
     Active Substance: MAGNESIUM CARBONATE
  6. WOOL FAT/ZINC OXIDE [Concomitant]
  7. BIOTIN [Concomitant]
     Active Substance: BIOTIN
  8. BABY ASPIRIN [Suspect]
     Active Substance: ASPIRIN
     Indication: PRODUCT USED FOR UNKNOWN INDICATION
     Route: 065
  9. CRESTOR [Concomitant]
     Active Substance: ROSUVASTATIN CALCIUM
  10. CALCIUM GLUCONATE. [Concomitant]
     Active Substance: CALCIUM GLUCONATE
  11. OMEGA 3-6-9 [Concomitant]
     Active Substance: FISH OIL
  12. LISINOPRIL. [Concomitant]
     Active Substance: LISINOPRIL
  13. FLORA-Q [Concomitant]
  14. LOSARTAN. [Concomitant]
     Active Substance: LOSARTAN
  15. PLAVIX [Suspect]
     Active Substance: CLOPIDOGREL BISULFATE
     Indication: PRODUCT USED FOR UNKNOWN INDICATION
     Route: 065
     Dates: end: 20141027
  16. CARVEDILOL. [Concomitant]
     Active Substance: CARVEDILOL
  17. COENZYME Q10 [Concomitant]
     Active Substance: UBIDECARENONE
  18. VITAMIN E [Concomitant]
     Active Substance: .ALPHA.-TOCOPHEROL
  19. NITROSTAT [Concomitant]
     Active Substance: NITROGLYCERIN

REACTIONS (20)
  - Hypersensitivity [Not Recovered/Not Resolved]
  - Milk allergy [Not Recovered/Not Resolved]
  - Blood test abnormal [Not Recovered/Not Resolved]
  - Weight decreased [Unknown]
  - Skin irritation [Not Recovered/Not Resolved]
  - Pruritus [Recovering/Resolving]
  - Diarrhoea [Recovered/Resolved]
  - Nausea [Unknown]
  - Haemorrhage [Unknown]
  - Alopecia [Unknown]
  - Burning sensation [Recovering/Resolving]
  - Flatulence [Unknown]
  - Epistaxis [Unknown]
  - Back pain [Not Recovered/Not Resolved]
  - Vitamin B12 increased [Unknown]
  - Rash [Not Recovered/Not Resolved]
  - Eosinophil count increased [Unknown]
  - Bone pain [Unknown]
  - Asthenia [Unknown]
  - Fall [Recovering/Resolving]

NARRATIVE: CASE EVENT DATE: 2013
